FAERS Safety Report 9355699 (Version 1)
Quarter: 2013Q2

REPORT INFORMATION
  Report Type: Spontaneous
  Country: US (occurrence: US)
  Receive Date: 20130619
  Receipt Date: 20130619
  Transmission Date: 20140414
  Serious: Yes (Hospitalization)
  Sender: FDA-Public Use
  Company Number: US-BAYER-2013-075346

PATIENT
  Age: 26 Year
  Sex: Female

DRUGS (17)
  1. YAZ [Suspect]
  2. BUDEPRION [Concomitant]
     Dosage: 150 MG, 1 TABLET BID
     Route: 048
  3. TOPAMAX [Concomitant]
     Dosage: 25 MG, 5 TABLETS AT HS
     Route: 048
  4. TOPAMAX [Concomitant]
     Dosage: 100 MG, ONE AND HALF TABLET AS NEEDED HS
  5. MELOXICAM [Concomitant]
     Dosage: 15 MG, 1 TABLET EVERY DAY
     Route: 048
  6. HYDROCODONE W/IBUPROFEN [Concomitant]
     Indication: HEADACHE
     Dosage: 7.5MG/200MG, 1 TABLET THREE TIMES DAILY AS NEEDED
     Route: 048
  7. CLONAZEPAM [Concomitant]
     Dosage: 1 MG, 1 TABLET TID
     Route: 048
  8. TRAMADOL [Concomitant]
     Dosage: 50 MG, 1 TABLET TID
     Route: 048
  9. ZANAFLEX [Concomitant]
     Dosage: 6 MG, 1 CAPSULE TID AS NEEDED
     Route: 048
  10. SERTRALINE [Concomitant]
     Dosage: 50 MG, ? TABLETS FOR 4 NIGHTS, THEN TAKE 1 TABLET EVERY NIGHT AT BEDTIME
     Route: 048
  11. RELPAX [Concomitant]
     Dosage: 40 MG, AS DIRECTED
  12. ULTRAM [Concomitant]
  13. ZOLOFT [Concomitant]
  14. KLONOPIN [Concomitant]
  15. WELLBUTRIN [Concomitant]
  16. VICODIN [Concomitant]
  17. MOTRIN [Concomitant]

REACTIONS (2)
  - Deep vein thrombosis [None]
  - Pulmonary embolism [None]
